FAERS Safety Report 9713267 (Version 1)
Quarter: 2013Q4

REPORT INFORMATION
  Report Type: Spontaneous
  Country: US (occurrence: US)
  Receive Date: 20131126
  Receipt Date: 20131126
  Transmission Date: 20140711
  Serious: Yes (Hospitalization, Other)
  Sender: FDA-Public Use
  Company Number: US-SA-2013SA122577

PATIENT
  Sex: Male

DRUGS (1)
  1. LANTUS [Suspect]
     Route: 065

REACTIONS (6)
  - Foot deformity [Unknown]
  - Tendon rupture [Unknown]
  - Decubitus ulcer [Unknown]
  - Postoperative wound infection [Unknown]
  - Renal failure [Unknown]
  - Arrhythmia [Unknown]
